FAERS Safety Report 4511474-X (Version None)
Quarter: 2004Q4

REPORT INFORMATION
  Report Type: 
  Country: None (occurrence: None)
  Receive Date: 20041129
  Receipt Date: 20040823
  Transmission Date: 20050328
  Serious: No
  Sender: FDA-Public Use
  Company Number: US-BRISTOL-MYERS SQUIBB COMPANY-12682811

PATIENT
  Age: 72 Year
  Sex: Female
  Weight: 32 kg

DRUGS (8)
  1. ABILIFY [Suspect]
     Indication: PSYCHOTIC DISORDER
     Route: 048
     Dates: start: 20040129
  2. VOLTAREN [Concomitant]
     Dates: start: 20040801
  3. SIMETHICONE [Concomitant]
     Dosage: CHEWABLES
     Dates: start: 20010101
  4. PREMARIN [Concomitant]
     Dosage: VAG CREAM
     Dates: start: 20010101
  5. RISEDRONATE SODIUM [Concomitant]
     Dates: start: 20010101
  6. VITAMIN E [Concomitant]
     Dates: start: 20010101
  7. LORAZEPAM [Concomitant]
     Dosage: EVERY 4 HOURS AS NEEDED
     Dates: start: 20010101
  8. CLONAZEPAM [Concomitant]
     Dosage: TWICE DAILY AND AT BEDTIME
     Dates: start: 20010101

REACTIONS (2)
  - BRUXISM [None]
  - PAIN IN JAW [None]
